FAERS Safety Report 6906126-2 (Version None)
Quarter: 2010Q3

REPORT INFORMATION
  Report Type: 
  Country: None (occurrence: None)
  Receive Date: 20100804
  Receipt Date: 20100726
  Transmission Date: 20110219
  Serious: Yes (Hospitalization)
  Sender: FDA-Public Use
  Company Number: US-SANOFI-AVENTIS-2010SA044999

PATIENT
  Age: 68 Year
  Sex: Female

DRUGS (4)
  1. SOLOSTAR [Suspect]
     Dates: start: 20100101
  2. LANTUS [Suspect]
     Dosage: DOSE:70 UNIT(S)
     Route: 058
     Dates: start: 20100101
  3. LANTUS [Suspect]
     Dosage: DOSE:70 UNIT(S)
     Route: 058
  4. NOVOLOG [Concomitant]

REACTIONS (4)
  - BLOOD GLUCOSE DECREASED [None]
  - KNEE OPERATION [None]
  - OVERDOSE [None]
  - PRODUCT QUALITY ISSUE [None]
